FAERS Safety Report 8429332-7 (Version None)
Quarter: 2012Q2

REPORT INFORMATION
  Report Type: 
  Country: None (occurrence: None)
  Receive Date: 20120612
  Receipt Date: 20120604
  Transmission Date: 20120825
  Serious: Yes (Hospitalization)
  Sender: FDA-Public Use
  Company Number: US-BAYER-2012-037864

PATIENT
  Age: 29 Year
  Sex: Female

DRUGS (6)
  1. MULTIVITAMINS AND IRON [Concomitant]
     Dosage: UNK UNK, QD
     Route: 048
     Dates: start: 20090812
  2. CRESTOR [Concomitant]
     Dosage: 5 MG, QD
     Route: 048
     Dates: start: 20090605
  3. IBUPROFEN [Concomitant]
     Indication: PAIN
     Dosage: 3 TABLETS DAILY
  4. PREVACID [Concomitant]
     Dosage: 30 MG, QD
     Route: 048
     Dates: start: 20090605
  5. DROSPIRENONE AND ETHINYL ESTRADIOL [Suspect]
     Dosage: UNK
     Dates: start: 20080301, end: 20091001
  6. FLONASE [Concomitant]
     Dosage: UNK UNK, PRN
     Route: 045
     Dates: start: 20090812

REACTIONS (7)
  - NERVOUSNESS [None]
  - FEAR OF DEATH [None]
  - THROMBOSIS [None]
  - INJURY [None]
  - MESENTERIC VEIN THROMBOSIS [None]
  - EMOTIONAL DISTRESS [None]
  - DEPRESSION [None]
